FAERS Safety Report 15591772 (Version 1)
Quarter: 2018Q4

REPORT INFORMATION
  Report Type: Spontaneous
  Country: FR (occurrence: FR)
  Receive Date: 20181107
  Receipt Date: 20181107
  Transmission Date: 20190205
  Serious: Yes (Hospitalization, Other)
  Sender: FDA-Public Use
  Company Number: FR-PURDUE-GBR-2018-0060328

PATIENT
  Age: 34 Year
  Sex: Female

DRUGS (11)
  1. NEFOPAM [Suspect]
     Active Substance: NEFOPAM
     Indication: ANALGESIC THERAPY
     Dosage: 40 MG, DAILY (40 MG, QID)
     Route: 048
  2. SUFENTANIL [Suspect]
     Active Substance: SUFENTANIL
     Indication: ANAESTHESIA
     Dosage: 5 MCG, DAILY (20 ML OF A SOLUTION OF 1MG/ML ROPIVACAINE AND 0.25 ONE FORTH G/ML SUFENTANIL )
     Route: 008
  3. NON-PMN MORPHINE SULFATE [Suspect]
     Active Substance: MORPHINE SULFATE
     Indication: ANALGESIC THERAPY
     Dosage: 2 MG, DAILY (2 MG, QID)
     Route: 008
  4. KETOPROFEN. [Suspect]
     Active Substance: KETOPROFEN
     Indication: ANALGESIC THERAPY
     Dosage: 50 MG, DAILY (50 MG, QID)
     Route: 048
  5. ADRENALIN                          /00003901/ [Suspect]
     Active Substance: EPINEPHRINE
     Indication: ANAESTHESIA
     Dosage: 2 MG, DAILY (15 ML OF LIDOCAINE 20MG/ML WITH ADRENALIN)
     Route: 008
  6. PARACETAMOL [Suspect]
     Active Substance: ACETAMINOPHEN
     Indication: ANALGESIC THERAPY
     Dosage: 1 G, DAILY (1 G, QID)
     Route: 048
  7. ENOXAPARIN [Suspect]
     Active Substance: ENOXAPARIN
     Indication: THROMBOSIS PROPHYLAXIS
     Dosage: 40 MG, DAILY (40 MG/ 24H)
     Route: 058
  8. LIDOCAINE                          /00033402/ [Suspect]
     Active Substance: LIDOCAINE
     Indication: ANAESTHESIA
     Dosage: 15 ML, TOTAL (15 ML OF LIDOCAINE 20MG/ML WITH ADRENALIN)
     Route: 008
  9. ENOXAPARIN [Suspect]
     Active Substance: ENOXAPARIN
     Indication: PRODUCT USED FOR UNKNOWN INDICATION
  10. ROPIVACAINE. [Suspect]
     Active Substance: ROPIVACAINE HYDROCHLORIDE
     Indication: ANAESTHESIA
     Dosage: 20 ML, DAILY (20 ML OF A SOLUTION OF 1 MG/ML ROPIVACAINE AND 0.25 G/ML SUFENTANIL )
     Route: 008
  11. ROPIVACAINE. [Suspect]
     Active Substance: ROPIVACAINE HYDROCHLORIDE
     Dosage: 20 ML, DAILY (20 MG, UNK)
     Route: 008

REACTIONS (8)
  - Peripheral nerve injury [Recovered/Resolved]
  - Paraesthesia [Recovered/Resolved]
  - Gait disturbance [Recovered/Resolved]
  - Neuropathy peripheral [Recovered/Resolved]
  - Epidural haemorrhage [Recovered/Resolved]
  - Maternal exposure during pregnancy [Unknown]
  - Foetal heart rate abnormal [Recovering/Resolving]
  - Epidural analgesia [Recovering/Resolving]
